FAERS Safety Report 12761510 (Version 2)
Quarter: 2016Q3

REPORT INFORMATION
  Report Type: Spontaneous
  Country: GB (occurrence: GB)
  Receive Date: 20160920
  Receipt Date: 20160927
  Transmission Date: 20161109
  Serious: Yes (Life-Threatening, Hospitalization)
  Sender: FDA-Public Use
  Company Number: GB-AXELLIA-000981

PATIENT
  Age: 73 Year
  Sex: Male

DRUGS (4)
  1. MEROPENEM/MEROPENEM TRIHYDRATE [Suspect]
     Active Substance: MEROPENEM
     Indication: ENDOCARDITIS
  2. VANCOMYCIN [Suspect]
     Active Substance: VANCOMYCIN
     Indication: ENDOCARDITIS
  3. GENTAMICIN/GENTAMICIN SULFATE [Concomitant]
     Active Substance: GENTAMICIN
     Indication: ENDOCARDITIS
  4. PARACETAMOL [Suspect]
     Active Substance: ACETAMINOPHEN
     Indication: PRODUCT USED FOR UNKNOWN INDICATION

REACTIONS (8)
  - Drug reaction with eosinophilia and systemic symptoms [Recovered/Resolved]
  - Cardiac arrest [Recovered/Resolved]
  - Acute kidney injury [None]
  - Orthostatic hypotension [None]
  - Fluid overload [None]
  - Haemodialysis [None]
  - Renal failure [None]
  - Fall [None]
